FAERS Safety Report 4439809-7 (Version None)
Quarter: 2004Q3

REPORT INFORMATION
  Report Type: 
  Country: None (occurrence: None)
  Receive Date: 20040831
  Receipt Date: 20040818
  Transmission Date: 20050211
  Serious: Yes (Hospitalization)
  Sender: FDA-Public Use
  Company Number: 2004CG01633

PATIENT
  Age: 62 Year
  Sex: Male
  Weight: 90 kg

DRUGS (7)
  1. NEXIUM [Suspect]
     Dosage: 20 MG DAILY PO
     Route: 048
     Dates: start: 20031215, end: 20040729
  2. XATRAL - SLOW RELEASE [Suspect]
     Dosage: 10 MG DAILY PO
     Route: 048
     Dates: start: 20010101
  3. XATRAL - SLOW RELEASE [Suspect]
     Dosage: 10 MG DAILY PO
     Route: 048
     Dates: start: 20020601
  4. NICARDIPINE HCL [Suspect]
     Dosage: 50 MG TID PO
     Route: 048
     Dates: start: 20030615
  5. HYPERIUM [Suspect]
     Dosage: 1 MG BID PO
     Route: 048
     Dates: start: 20021015
  6. APPROVEL [Suspect]
     Dosage: 150 MG DAILY PO
     Route: 048
     Dates: start: 20021015
  7. DIAMICRON [Suspect]
     Dosage: 30 MG DAILY PO
     Route: 048
     Dates: start: 20020416, end: 20040728

REACTIONS (3)
  - INFLUENZA [None]
  - PANCYTOPENIA [None]
  - RENAL COLIC [None]
